FAERS Safety Report 9271588 (Version 3)
Quarter: 2013Q2

REPORT INFORMATION
  Report Type: Spontaneous
  Country: JP (occurrence: JP)
  Receive Date: 20130506
  Receipt Date: 20130515
  Transmission Date: 20140414
  Serious: Yes (Other)
  Sender: FDA-Public Use
  Company Number: JP-PFIZER INC-2013137150

PATIENT
  Age: 87 Year
  Sex: Female

DRUGS (2)
  1. FLUCAM [Suspect]
     Route: 048
  2. RENIVACE [Suspect]

REACTIONS (4)
  - Interstitial lung disease [Unknown]
  - Pleural effusion [None]
  - Cardiomegaly [None]
  - Condition aggravated [None]
